FAERS Safety Report 6529978-7 (Version None)
Quarter: 2009Q4

REPORT INFORMATION
  Report Type: 
  Country: None (occurrence: None)
  Receive Date: 20091231
  Receipt Date: 20091221
  Transmission Date: 20100525
  Serious: Yes (Death)
  Sender: FDA-Public Use
  Company Number: 200812IM000353

PATIENT
  Age: 19 Year
  Sex: Female

DRUGS (5)
  1. ACTIMMUNE [Suspect]
     Indication: RETINOBLASTOMA
  2. PROLEUKIN [Suspect]
     Indication: RETINOBLASTOMA
  3. VINCRISTINE [Concomitant]
  4. CYCLOPHOSPHAMIDE [Concomitant]
  5. IFOSFAMIDE [Concomitant]

REACTIONS (4)
  - BLADDER CANCER [None]
  - METASTASES TO LYMPH NODES [None]
  - REFUSAL OF TREATMENT BY PATIENT [None]
  - TREATMENT FAILURE [None]
